FAERS Safety Report 6552682-6 (Version None)
Quarter: 2010Q1

REPORT INFORMATION
  Report Type: 
  Country: None (occurrence: None)
  Receive Date: 20100126
  Receipt Date: 20100120
  Transmission Date: 20100710
  Serious: Yes (Death)
  Sender: FDA-Public Use
  Company Number: B0627465A

PATIENT
  Age: 76 Year
  Sex: Male

DRUGS (3)
  1. PAROXETINE HYDROCHLORIDE [Suspect]
     Dosage: 50PCT PER DAY
     Route: 065
     Dates: start: 19980101, end: 19981001
  2. PAROXETINE HYDROCHLORIDE [Suspect]
     Route: 065
     Dates: start: 19981001, end: 19990801
  3. PAROXETINE HYDROCHLORIDE [Suspect]
     Dates: start: 20000110

REACTIONS (1)
  - COMPLETED SUICIDE [None]
